FAERS Safety Report 6249361-1 (Version None)
Quarter: 2009Q2

REPORT INFORMATION
  Report Type: 
  Country: None (occurrence: None)
  Receive Date: 20090629
  Receipt Date: 20090601
  Transmission Date: 20091009
  Serious: Yes (Hospitalization, Other)
  Sender: FDA-Public Use
  Company Number: JP-PFIZER INC-2008155650

PATIENT
  Age: 70 Year
  Sex: Male
  Weight: 65 kg

DRUGS (1)
  1. ZYVOX [Suspect]
     Dosage: UNK
     Route: 042
     Dates: start: 20061218, end: 20070224

REACTIONS (1)
  - ANAEMIA [None]
